FAERS Safety Report 19786431 (Version 1)
Quarter: 2021Q3

REPORT INFORMATION
  Report Type: Spontaneous
  Country: BR (occurrence: BR)
  Receive Date: 20210903
  Receipt Date: 20210903
  Transmission Date: 20211014
  Serious: Yes (Death, Hospitalization, Other)
  Sender: FDA-Public Use
  Company Number: BR-MYLANLABS-2021M1057066

PATIENT
  Age: 66 Year
  Sex: Male
  Weight: 85 kg

DRUGS (19)
  1. AMLODIPINE [Concomitant]
     Active Substance: AMLODIPINE BESYLATE
     Dosage: 5 MILLIGRAM, QD
     Route: 048
  2. BROMOPRIDE [Concomitant]
     Active Substance: BROMOPRIDE
     Indication: NAUSEA
     Dosage: UNK (5 MG/ 1 ML 2 ML)
     Route: 042
  3. TRAMADOL. [Concomitant]
     Active Substance: TRAMADOL
     Indication: PAIN
     Dosage: 100 MG/ 2ML
     Route: 042
  4. BECLOMETASONE;FORMOTEROL [Concomitant]
     Active Substance: BECLOMETHASONE\FORMOTEROL
     Dosage: 2 DOSAGE FORM, Q8H (BECLOM. 100MCG +FORM 6 MCG)
  5. SALBUTAMOL [Concomitant]
     Active Substance: ALBUTEROL
     Dosage: 100 MICROGRAM, Q4H
  6. POLYMYXIN B MYLAN [Suspect]
     Active Substance: POLYMYXIN B SULFATE
     Indication: TRACHEITIS
     Dosage: 500 INTERNATIONAL UNIT, BID
     Route: 042
  7. SACCHAROMYCES BOULARDII [Concomitant]
     Active Substance: SACCHAROMYCES CEREVISIAE
     Dosage: 100 MILLIGRAM, Q6H
     Route: 048
  8. BROMOPRIDE [Concomitant]
     Active Substance: BROMOPRIDE
     Indication: VOMITING
  9. NPH INSULIN [Concomitant]
     Active Substance: INSULIN BEEF
     Dosage: 16 INTERNATIONAL UNIT, TID
     Route: 058
  10. FLUCONAZOL [Concomitant]
     Active Substance: FLUCONAZOLE
     Dosage: 150 MILLIGRAM, QD
     Route: 048
  11. CALCIUM CARBONATE. [Concomitant]
     Active Substance: CALCIUM CARBONATE
     Dosage: 20 MILLIGRAM, Q6H
     Route: 048
  12. DIPYRONE [Concomitant]
     Active Substance: DIPYRONE
     Dosage: UNK (5000 MG/ML 2 ML)
     Route: 042
  13. SCOPOLAMINE                        /00008701/ [Concomitant]
     Active Substance: SCOPOLAMINE
     Dosage: 20 MG/ML
     Route: 042
  14. PANTOPRAZOLE [Concomitant]
     Active Substance: PANTOPRAZOLE
     Dosage: 40 MILLIGRAM, QD
     Route: 042
  15. POLYMYXIN B MYLAN [Suspect]
     Active Substance: POLYMYXIN B SULFATE
     Dosage: 500 INTERNATIONAL UNIT, BID
     Route: 042
     Dates: start: 20210721, end: 20210728
  16. POLYMYXIN B MYLAN [Suspect]
     Active Substance: POLYMYXIN B SULFATE
     Dosage: 500 INTERNATIONAL UNIT, BID
     Route: 042
     Dates: start: 20210806, end: 20210812
  17. POLYMYXIN B MYLAN [Suspect]
     Active Substance: POLYMYXIN B SULFATE
     Dosage: 500 INTERNATIONAL UNIT, BID
     Route: 042
     Dates: start: 20210825
  18. REGULAR INSULIN NOVO NORDISK [Concomitant]
     Active Substance: INSULIN HUMAN
     Dosage: 6 INTERNATIONAL UNIT, TID
     Route: 058
  19. ENOXAPARIN [Concomitant]
     Active Substance: ENOXAPARIN
     Dosage: UNK, QD (80 MG/ 0.8 ML)
     Route: 058

REACTIONS (5)
  - Hypotension [Unknown]
  - Nausea [Unknown]
  - COVID-19 [Fatal]
  - Aspiration [Unknown]
  - Vomiting [Unknown]

NARRATIVE: CASE EVENT DATE: 20210810
